FAERS Safety Report 7337329-3 (Version None)
Quarter: 2011Q1

REPORT INFORMATION
  Report Type: 
  Country: None (occurrence: None)
  Receive Date: 20110308
  Receipt Date: 20090402
  Transmission Date: 20110831
  Serious: No
  Sender: FDA-Public Use
  Company Number: 2009BI010808

PATIENT
  Age: 41 Year
  Sex: Female

DRUGS (1)
  1. TYSABRI [Suspect]
     Indication: MULTIPLE SCLEROSIS
     Route: 042
     Dates: start: 20090205

REACTIONS (7)
  - TACHYCARDIA [None]
  - HEADACHE [None]
  - FLUSHING [None]
  - VISION BLURRED [None]
  - DISORIENTATION [None]
  - DIZZINESS [None]
  - VISUAL IMPAIRMENT [None]
